FAERS Safety Report 20877759 (Version 1)
Quarter: 2022Q2

REPORT INFORMATION
  Report Type: Report from Study
  Country: AU (occurrence: None)
  Receive Date: 20220526
  Receipt Date: 20220526
  Transmission Date: 20220720
  Serious: Yes (Hospitalization)
  Sender: FDA-Public Use
  Company Number: AU-ROCHE-2703178

PATIENT
  Age: 74 Year
  Sex: Female
  Weight: 75 kg

DRUGS (8)
  1. ATEZOLIZUMAB [Suspect]
     Active Substance: ATEZOLIZUMAB
     Indication: Triple negative breast cancer
     Dosage: MOST RECENT DOSE OF ATEZOLIZUMAB PRIOR TO AE AND SAE ON 20/OCT/2020
     Route: 042
     Dates: start: 20200728
  2. PACLITAXEL [Suspect]
     Active Substance: PACLITAXEL
     Indication: Triple negative breast cancer
     Dosage: MOST RECENT DOSE PF PACLITAXEL PRIOR TO AE AND SAE ON 06/OCT/2020 AT THE DOSE OF 138 MG
     Route: 042
     Dates: start: 20200728
  3. CYCLOPHOSPHAMIDE [Suspect]
     Active Substance: CYCLOPHOSPHAMIDE
     Indication: Triple negative breast cancer
     Dosage: MOST RECENT DOSE PRIOR TO AE AND SAE ONSET: 20/OCT/2020
     Route: 042
     Dates: start: 20201020
  4. PEGFILGRASTIM [Suspect]
     Active Substance: PEGFILGRASTIM
     Indication: Triple negative breast cancer
     Dosage: CYCLE 4 VISIT 1, START AND END TIME 16:00
     Route: 058
     Dates: start: 20201021, end: 20201021
  5. PEGFILGRASTIM [Suspect]
     Active Substance: PEGFILGRASTIM
     Dosage: CYCLE 4 VISIT 2, START AND END TIME 14:30
     Route: 058
     Dates: start: 20201111, end: 20201111
  6. PEGFILGRASTIM [Suspect]
     Active Substance: PEGFILGRASTIM
     Dosage: CYCLE 5 VISIT 1, START TIME 15:30, END TIME 15:31
     Route: 058
     Dates: start: 20201125, end: 20201125
  7. PEGFILGRASTIM [Suspect]
     Active Substance: PEGFILGRASTIM
     Dosage: CYCLE 5 VISIT 2, START AND END TIME 14:30
     Route: 058
     Dates: start: 20201209, end: 20201209
  8. DOXORUBICIN [Suspect]
     Active Substance: DOXORUBICIN
     Indication: Triple negative breast cancer
     Dosage: MOST RECENT DOSE PRIOR TO AE AND SAE ONSET: 20/OCT/2020
     Route: 042
     Dates: start: 20201020

REACTIONS (1)
  - Febrile neutropenia [Recovered/Resolved]

NARRATIVE: CASE EVENT DATE: 20201026
